FAERS Safety Report 8133998 (Version 3)
Quarter: 2012Q4

REPORT INFORMATION
  Report Type: Report from Study
  Country: GR (occurrence: GR)
  Receive Date: 20110913
  Receipt Date: 20120918
  Transmission Date: 20130627
  Serious: Yes (Hospitalization)
  Sender: FDA-Public Use
  Company Number: GR-ABBOTT-11P-066-0851801-00

PATIENT
  Age: 58 Year
  Sex: Male
  Weight: 83 kg

DRUGS (1)
  1. HUMIRA 40 MG/ 0.8 ML PRE-FILLED SYRINGE [Suspect]
     Indication: PSORIASIS
     Route: 058
     Dates: start: 20110414

REACTIONS (5)
  - Ischaemic stroke [Recovered/Resolved]
  - Hypoaesthesia [Recovering/Resolving]
  - Paresis [Recovering/Resolving]
  - VIIth nerve paralysis [Recovering/Resolving]
  - Dysarthria [Recovering/Resolving]
